FAERS Safety Report 9280599 (Version 4)
Quarter: 2014Q1

REPORT INFORMATION
  Report Type: Report from Study
  Country: US (occurrence: US)
  Receive Date: 20130509
  Receipt Date: 20140325
  Transmission Date: 20141002
  Serious: Yes (Other)
  Sender: FDA-Public Use
  Company Number: US-SANOFI-AVENTIS-2013SA046112

PATIENT
  Age: 49 Year
  Sex: Male
  Weight: 74 kg

DRUGS (2)
  1. AUBAGIO [Suspect]
     Indication: MULTIPLE SCLEROSIS
     Dosage: STARTED 8 MONTHS AGO
     Route: 048
     Dates: start: 20130113
  2. ALLEGRA [Concomitant]
     Indication: HYPERSENSITIVITY

REACTIONS (6)
  - Gastric ulcer [Not Recovered/Not Resolved]
  - Aortic aneurysm [Not Recovered/Not Resolved]
  - Diarrhoea [Not Recovered/Not Resolved]
  - Blood triglycerides increased [Unknown]
  - Unevaluable event [Unknown]
  - Coeliac disease [Not Recovered/Not Resolved]
